FAERS Safety Report 5485955-9 (Version None)
Quarter: 2007Q4

REPORT INFORMATION
  Report Type: 
  Country: None (occurrence: None)
  Receive Date: 20071012
  Receipt Date: 20070928
  Transmission Date: 20080405
  Serious: Yes (Death, Disabling)
  Sender: FDA-Public Use
  Company Number: 260-20785-07091331

PATIENT
  Age: 67 Year
  Sex: Female

DRUGS (1)
  1. THALIDOMIDE [Suspect]
     Indication: MULTIPLE MYELOMA
     Dosage: 100 MG, 2 IN 1 D, ORAL
     Route: 048
     Dates: start: 20070718, end: 20070101

REACTIONS (10)
  - ANOREXIA [None]
  - ASTHENIA [None]
  - BACK PAIN [None]
  - DISEASE PROGRESSION [None]
  - INFLAMMATION [None]
  - LIGHT CHAIN ANALYSIS INCREASED [None]
  - PARAPARESIS [None]
  - REFUSAL OF TREATMENT BY RELATIVE [None]
  - SOMNOLENCE [None]
  - STUPOR [None]
